FAERS Safety Report 9928767 (Version 1)
Quarter: 2014Q1

REPORT INFORMATION
  Report Type: Spontaneous
  Country: FR (occurrence: FR)
  Receive Date: 20140227
  Receipt Date: 20140227
  Transmission Date: 20141002
  Serious: Yes (Hospitalization)
  Sender: FDA-Public Use
  Company Number: PHHY2014FR022265

PATIENT
  Age: 72 Year
  Sex: Female

DRUGS (4)
  1. FLECAINIDE [Suspect]
     Dosage: 100 MG, BID
  2. IRBESARTAN [Concomitant]
  3. HALOPERIDOL [Concomitant]
  4. AMIODARONE [Concomitant]

REACTIONS (7)
  - Left ventricular failure [Unknown]
  - Left ventricular hypertrophy [Unknown]
  - Systolic dysfunction [Unknown]
  - Dyspnoea [Unknown]
  - Ejection fraction decreased [Unknown]
  - Ventricular tachycardia [Recovered/Resolved]
  - Overdose [Unknown]
